FAERS Safety Report 11089095 (Version 1)
Quarter: 2015Q2

REPORT INFORMATION
  Report Type: Spontaneous
  Country: FR (occurrence: FR)
  Receive Date: 20150505
  Receipt Date: 20150505
  Transmission Date: 20150821
  Serious: Yes (Death)
  Sender: FDA-Public Use
  Company Number: FR-ROCHE-1571245

PATIENT
  Age: 46 Year
  Sex: Male

DRUGS (5)
  1. LEPTICUR [Suspect]
     Active Substance: TROPATEPINE HYDROCHLORIDE
     Indication: PSYCHOTIC DISORDER
     Route: 048
     Dates: end: 20141005
  2. MIANSERINE [Suspect]
     Active Substance: MIANSERIN HYDROCHLORIDE
     Indication: PSYCHOTIC DISORDER
     Route: 048
     Dates: end: 20141005
  3. VALIUM [Suspect]
     Active Substance: DIAZEPAM
     Indication: PSYCHOTIC DISORDER
     Route: 048
     Dates: end: 20141005
  4. TERCIAN [Suspect]
     Active Substance: CYAMEMAZINE
     Indication: PSYCHOTIC DISORDER
     Route: 048
     Dates: end: 20141005
  5. NOCTAMIDE [Suspect]
     Active Substance: LORMETAZEPAM
     Indication: PSYCHOTIC DISORDER
     Route: 048
     Dates: end: 20141005

REACTIONS (2)
  - Colonic pseudo-obstruction [Fatal]
  - Shock [Fatal]

NARRATIVE: CASE EVENT DATE: 201410
